FAERS Safety Report 16321782 (Version 2)
Quarter: 2019Q3

REPORT INFORMATION
  Report Type: Report from Study
  Country: CA (occurrence: CA)
  Receive Date: 20190516
  Receipt Date: 20190708
  Transmission Date: 20191004
  Serious: Yes (Hospitalization, Other)
  Sender: FDA-Public Use
  Company Number: CA-JNJFOC-20190518080

PATIENT
  Age: 12 Year
  Sex: Female
  Weight: 57.7 kg

DRUGS (2)
  1. REMICADE [Suspect]
     Active Substance: INFLIXIMAB
     Route: 042
     Dates: start: 20170313
  2. REMICADE [Suspect]
     Active Substance: INFLIXIMAB
     Indication: CROHN^S DISEASE
     Route: 042
     Dates: start: 20160812

REACTIONS (3)
  - Pneumonia [Recovering/Resolving]
  - Benign neoplasm [Unknown]
  - Abdominal pain [Unknown]

NARRATIVE: CASE EVENT DATE: 201703
